FAERS Safety Report 20535876 (Version 2)
Quarter: 2022Q1

REPORT INFORMATION
  Report Type: Report from Study
  Country: US (occurrence: US)
  Receive Date: 20220302
  Receipt Date: 20220330
  Transmission Date: 20220423
  Serious: Yes (Other)
  Sender: FDA-Public Use
  Company Number: US-ABBVIE-22K-163-4296750-00

PATIENT
  Sex: Male

DRUGS (1)
  1. HUMIRA [Suspect]
     Active Substance: ADALIMUMAB
     Indication: Psoriatic arthropathy
     Dosage: CITRATE FREE
     Route: 058

REACTIONS (9)
  - Exostosis [Unknown]
  - Carpal tunnel syndrome [Unknown]
  - Bursitis [Unknown]
  - Rotator cuff repair [Unknown]
  - Scar [Unknown]
  - Limb injury [Unknown]
  - Accident [Unknown]
  - COVID-19 [Unknown]
  - Intervertebral disc protrusion [Unknown]

NARRATIVE: CASE EVENT DATE: 20200101
